FAERS Safety Report 17580673 (Version 2)
Quarter: 2020Q3

REPORT INFORMATION
  Report Type: Spontaneous
  Country: JP (occurrence: JP)
  Receive Date: 20200325
  Receipt Date: 20200921
  Transmission Date: 20201102
  Serious: Yes (Hospitalization)
  Sender: FDA-Public Use
  Company Number: JP-009507513-1912JPN000329J

PATIENT
  Age: 65 Year
  Sex: Male

DRUGS (1)
  1. KEYTRUDA [Suspect]
     Active Substance: PEMBROLIZUMAB
     Indication: MALIGNANT MELANOMA
     Dosage: 200 MILLIGRAM, Q3W
     Route: 041
     Dates: start: 20190918, end: 2019

REACTIONS (2)
  - Perivascular dermatitis [Recovering/Resolving]
  - Photosensitivity reaction [Unknown]

NARRATIVE: CASE EVENT DATE: 20191120
